FAERS Safety Report 13164346 (Version 1)
Quarter: 2017Q1

REPORT INFORMATION
  Report Type: Spontaneous
  Country: US (occurrence: US)
  Receive Date: 20170130
  Receipt Date: 20170130
  Transmission Date: 20170428
  Serious: Yes (Other)
  Sender: FDA-Public Use
  Company Number: US-SEATTLE GENETICS-2017SGN00057

PATIENT

DRUGS (1)
  1. ADCETRIS [Suspect]
     Active Substance: BRENTUXIMAB VEDOTIN
     Indication: PRODUCT USED FOR UNKNOWN INDICATION
     Dosage: 151 MG, QWEEK
     Route: 065
     Dates: start: 201611

REACTIONS (2)
  - Visual acuity reduced [Unknown]
  - Blindness [Unknown]

NARRATIVE: CASE EVENT DATE: 201612
